FAERS Safety Report 5540820-3 (Version None)
Quarter: 2007Q4

REPORT INFORMATION
  Report Type: 
  Country: None (occurrence: None)
  Receive Date: 20071129
  Receipt Date: 20070510
  Transmission Date: 20080405
  Serious: Yes (Other)
  Sender: FDA-Public Use
  Company Number: US200703002662

PATIENT
  Age: 42 Year
  Sex: Male
  Weight: 113.4 kg

DRUGS (3)
  1. ZYPREXA [Suspect]
     Indication: MENTAL DISORDER
     Dosage: 15 MG, 5 MG,
     Dates: start: 20020801, end: 20030101
  2. PROZAC [Concomitant]
  3. DEPAKOTE (VALPROATE SEMISODIUM) TABLET [Concomitant]

REACTIONS (2)
  - DIABETES MELLITUS [None]
  - DIABETIC KETOACIDOSIS [None]
